APPROVED DRUG PRODUCT: ROCEPHIN KIT
Active Ingredient: CEFTRIAXONE SODIUM; LIDOCAINE
Strength: EQ 500MG BASE/VIAL,N/A;N/A,1%
Dosage Form/Route: INJECTABLE;INJECTION
Application: N050585 | Product #007
Applicant: HOFFMANN LA ROCHE INC
Approved: May 8, 1996 | RLD: No | RS: No | Type: DISCN